FAERS Safety Report 18409107 (Version 1)
Quarter: 2020Q4

REPORT INFORMATION
  Report Type: Spontaneous
  Country: US (occurrence: US)
  Receive Date: 20201020
  Receipt Date: 20201020
  Transmission Date: 20210114
  Serious: Yes (Other)
  Sender: FDA-Public Use
  Company Number: None

PATIENT
  Age: 62 Year
  Sex: Male
  Weight: 78.75 kg

DRUGS (9)
  1. ALBUTEROL. [Concomitant]
     Active Substance: ALBUTEROL
  2. SINGULAIR [Concomitant]
     Active Substance: MONTELUKAST SODIUM
  3. METOPROLOL TARTRATE. [Concomitant]
     Active Substance: METOPROLOL TARTRATE
  4. TURMERIC ROOT [Concomitant]
  5. CARVEDILOL 3.125MG [Suspect]
     Active Substance: CARVEDILOL
     Indication: CARDIAC DISORDER
     Dosage: ?          QUANTITY:1 TABLET(S);?
     Route: 048
     Dates: start: 20200921, end: 20201013
  6. IRBESARTAN. [Concomitant]
     Active Substance: IRBESARTAN
  7. HYDROCHLOROTHIAZIDE. [Concomitant]
     Active Substance: HYDROCHLOROTHIAZIDE
  8. TURMERIC [Concomitant]
     Active Substance: HERBALS\TURMERIC
  9. WIXELA INHUB [Concomitant]
     Active Substance: FLUTICASONE PROPIONATE\SALMETEROL XINAFOATE

REACTIONS (5)
  - Feeling abnormal [None]
  - Nausea [None]
  - Diarrhoea [None]
  - Affective disorder [None]
  - Nightmare [None]

NARRATIVE: CASE EVENT DATE: 20201013
